FAERS Safety Report 22059759 (Version 3)
Quarter: 2023Q2

REPORT INFORMATION
  Report Type: Spontaneous
  Country: US (occurrence: US)
  Receive Date: 20230303
  Receipt Date: 20230410
  Transmission Date: 20230721
  Serious: No
  Sender: FDA-Public Use
  Company Number: US-SANOFI-01511298

PATIENT
  Age: 63 Year
  Sex: Male

DRUGS (1)
  1. LANTUS SOLOSTAR [Suspect]
     Active Substance: INSULIN GLARGINE
     Indication: Type 1 diabetes mellitus
     Dosage: 14 U, QD

REACTIONS (5)
  - Illness [Unknown]
  - Blood glucose increased [Unknown]
  - Device issue [Unknown]
  - Product storage error [Unknown]
  - Product dispensing error [Unknown]
